FAERS Safety Report 24526723 (Version 3)
Quarter: 2024Q4

REPORT INFORMATION
  Report Type: Spontaneous
  Country: FR (occurrence: FR)
  Receive Date: 20241021
  Receipt Date: 20241209
  Transmission Date: 20250115
  Serious: Yes (Other)
  Sender: CSL BEHRING
  Company Number: None

PATIENT
  Age: 71 Year
  Sex: Male
  Weight: 80 kg

DRUGS (2)
  1. PRIVIGEN [Suspect]
     Active Substance: HUMAN IMMUNOGLOBULIN G
     Indication: Encephalitis autoimmune
     Dosage: 20 G, QD
     Route: 042
     Dates: start: 20241002, end: 20241006
  2. PRIVIGEN [Suspect]
     Active Substance: HUMAN IMMUNOGLOBULIN G
     Indication: Off label use
     Dosage: 10 G, QD
     Route: 042
     Dates: start: 20241002, end: 20241006

REACTIONS (10)
  - Bacterial sepsis [Not Recovered/Not Resolved]
  - Product contamination microbial [Unknown]
  - Enterobacter test positive [Unknown]
  - Proteus test positive [Unknown]
  - Sluggishness [Unknown]
  - Pallor [Unknown]
  - Hypothermia [Not Recovered/Not Resolved]
  - Chills [Not Recovered/Not Resolved]
  - Oxygen saturation decreased [Not Recovered/Not Resolved]
  - Off label use [Unknown]

NARRATIVE: CASE EVENT DATE: 20241001
